FAERS Safety Report 4861182-0 (Version None)
Quarter: 2005Q4

REPORT INFORMATION
  Report Type: 
  Country: None (occurrence: None)
  Receive Date: 20051216
  Receipt Date: 20051209
  Transmission Date: 20060501
  Serious: Yes (Hospitalization, Other)
  Sender: FDA-Public Use
  Company Number: KII-2005-0020257

PATIENT
  Age: 43 Year
  Sex: Male
  Weight: 113.4 kg

DRUGS (1)
  1. HYDROMORPHONE HCL (HYDROMORPHONE HYDROCHLORIDE) [Suspect]
     Indication: BACK PAIN
     Dosage: SEE TEXT, ORAL
     Route: 048

REACTIONS (6)
  - BLOOD GLUCOSE INCREASED [None]
  - HEADACHE [None]
  - INTENTIONAL DRUG MISUSE [None]
  - INTENTIONAL OVERDOSE [None]
  - OXYGEN SATURATION DECREASED [None]
  - SOMNOLENCE [None]
